FAERS Safety Report 5928270-9 (Version None)
Quarter: 2008Q4

REPORT INFORMATION
  Report Type: 
  Country: None (occurrence: None)
  Receive Date: 20081022
  Receipt Date: 20081022
  Transmission Date: 20090506
  Serious: No
  Sender: FDA-Public Use
  Company Number: None

PATIENT
  Sex: Female
  Weight: 65.7716 kg

DRUGS (1)
  1. HUMIRA [Suspect]
     Dosage: 40 MG Q2W SQ
     Route: 058
     Dates: start: 20080601

REACTIONS (2)
  - THYROID MASS [None]
  - WEIGHT INCREASED [None]
